FAERS Safety Report 6125563-X (Version None)
Quarter: 2009Q1

REPORT INFORMATION
  Report Type: 
  Country: None (occurrence: None)
  Receive Date: 20090320
  Receipt Date: 20090317
  Transmission Date: 20090719
  Serious: Yes (Other)
  Sender: FDA-Public Use
  Company Number: US-BAYER-200813737NA

PATIENT
  Age: 27 Year
  Sex: Female
  Weight: 54 kg

DRUGS (1)
  1. MIRENA [Suspect]
     Indication: DRUG USE FOR UNKNOWN INDICATION
     Route: 015
     Dates: start: 20080114, end: 20080212

REACTIONS (6)
  - ABDOMINAL PAIN LOWER [None]
  - DYSMENORRHOEA [None]
  - PELVIC PAIN [None]
  - PYREXIA [None]
  - UTERINE RUPTURE [None]
  - VAGINAL HAEMORRHAGE [None]
